FAERS Safety Report 23056201 (Version 2)
Quarter: 2023Q4

REPORT INFORMATION
  Report Type: Report from Study
  Country: GB (occurrence: GB)
  Receive Date: 20231011
  Receipt Date: 20231206
  Transmission Date: 20240110
  Serious: Yes (Other)
  Sender: FDA-Public Use
  Company Number: GB-ABBVIE-5445263

PATIENT
  Age: 62 Year
  Sex: Female
  Weight: 5.896 kg

DRUGS (2)
  1. RINVOQ [Suspect]
     Active Substance: UPADACITINIB
     Indication: Arthritis
     Dosage: FORM STRENGTH: 15 MG
     Route: 048
     Dates: end: 20230915
  2. Covid-19 vaccine [Concomitant]
     Indication: COVID-19 immunisation
     Dates: start: 20231022, end: 20231022

REACTIONS (2)
  - Eye operation [Recovered/Resolved]
  - Infection [Unknown]

NARRATIVE: CASE EVENT DATE: 20230922
